FAERS Safety Report 14781543 (Version 1)
Quarter: 2018Q2

REPORT INFORMATION
  Report Type: Spontaneous
  Country: AU (occurrence: AU)
  Receive Date: 20180420
  Receipt Date: 20180420
  Transmission Date: 20180711
  Serious: Yes (Hospitalization)
  Sender: FDA-Public Use
  Company Number: AU-ASTRAZENECA-2018SE48447

PATIENT
  Age: 30107 Day
  Sex: Male
  Weight: 70 kg

DRUGS (1)
  1. DAPAGLIFLOZIN. [Suspect]
     Active Substance: DAPAGLIFLOZIN
     Route: 048
     Dates: start: 20160401, end: 20160610

REACTIONS (2)
  - Ketoacidosis [Recovered/Resolved]
  - Anion gap increased [Recovered/Resolved]

NARRATIVE: CASE EVENT DATE: 20160619
